FAERS Safety Report 12408302 (Version 5)
Quarter: 2016Q3

REPORT INFORMATION
  Report Type: Spontaneous
  Country: US (occurrence: US)
  Receive Date: 20160526
  Receipt Date: 20160928
  Transmission Date: 20161109
  Serious: No
  Sender: FDA-Public Use
  Company Number: US-PFIZER INC-2016276584

PATIENT
  Age: 70 Year
  Sex: Female

DRUGS (1)
  1. XELJANZ [Suspect]
     Active Substance: TOFACITINIB CITRATE
     Indication: RHEUMATOID ARTHRITIS
     Dosage: 5 MG, UNK
     Dates: start: 201602, end: 201608

REACTIONS (5)
  - Peripheral swelling [Unknown]
  - Cardiac disorder [Recovering/Resolving]
  - Joint swelling [Unknown]
  - Weight increased [Unknown]
  - Fluid retention [Unknown]
